FAERS Safety Report 9586911 (Version 1)
Quarter: 2013Q4

REPORT INFORMATION
  Report Type: Report from Study
  Country: CA (occurrence: CA)
  Receive Date: 20131003
  Receipt Date: 20131003
  Transmission Date: 20140711
  Serious: Yes (Other)
  Sender: FDA-Public Use
  Company Number: CA-JNJFOC-20130916396

PATIENT
  Age: 42 Year
  Sex: Male
  Weight: 78.2 kg

DRUGS (6)
  1. REMICADE [Suspect]
     Indication: CROHN^S DISEASE
     Dosage: 1ST INFUSION
     Route: 042
     Dates: start: 20130925
  2. MODULON [Concomitant]
     Route: 065
  3. SALOFALK [Concomitant]
     Route: 065
  4. IRON [Concomitant]
     Route: 065
  5. IMURAN [Concomitant]
     Route: 065
  6. HYDROCORTISONE [Concomitant]
     Indication: PREMEDICATION
     Route: 042

REACTIONS (6)
  - Tunnel vision [Recovered/Resolved]
  - Infusion related reaction [Recovered/Resolved]
  - Presyncope [Recovered/Resolved]
  - Dizziness [Recovered/Resolved]
  - Tremor [Recovered/Resolved]
  - Blood pressure increased [Recovered/Resolved]
